FAERS Safety Report 20191272 (Version 2)
Quarter: 2022Q2

REPORT INFORMATION
  Report Type: Spontaneous
  Country: US (occurrence: US)
  Receive Date: 20211216
  Receipt Date: 20220413
  Transmission Date: 20220721
  Serious: No
  Sender: FDA-Public Use
  Company Number: US-Blueprint Medicines Corporation-SP-US-2021-002431

PATIENT
  Age: 69 Year
  Sex: Male

DRUGS (3)
  1. AYVAKIT [Suspect]
     Active Substance: AVAPRITINIB
     Indication: Systemic mastocytosis
     Route: 048
     Dates: start: 20210920
  2. AYVAKIT [Suspect]
     Active Substance: AVAPRITINIB
     Route: 048
     Dates: start: 20210920
  3. Jakfi [Concomitant]
     Indication: Systemic mastocytosis
     Route: 048

REACTIONS (3)
  - Joint stiffness [Unknown]
  - Joint swelling [Unknown]
  - Fatigue [Unknown]
